FAERS Safety Report 5056196-4 (Version None)
Quarter: 2006Q3

REPORT INFORMATION
  Report Type: 
  Country: None (occurrence: None)
  Receive Date: 20060717
  Receipt Date: 20060704
  Transmission Date: 20061208
  Serious: Yes (Other)
  Sender: FDA-Public Use
  Company Number: 2006084650

PATIENT
  Age: 42 Year
  Sex: Male

DRUGS (2)
  1. PHENYTOIN SODIUM [Suspect]
     Indication: DRUG USE FOR UNKNOWN INDICATION
     Dosage: (375 MG), ORAL
     Route: 048
  2. KEPPRA [Concomitant]

REACTIONS (2)
  - NEUTROPENIC SEPSIS [None]
  - PANCYTOPENIA [None]
